FAERS Safety Report 6934760-2 (Version None)
Quarter: 2010Q3

REPORT INFORMATION
  Report Type: 
  Country: None (occurrence: None)
  Receive Date: 20100820
  Receipt Date: 20100813
  Transmission Date: 20110219
  Serious: Yes (Other)
  Sender: FDA-Public Use
  Company Number: US-AMGEN-QUU412709

PATIENT
  Sex: Male

DRUGS (2)
  1. ENBREL [Suspect]
     Indication: RHEUMATOID ARTHRITIS
     Route: 058
     Dates: start: 20070301
  2. ENBREL [Suspect]
     Indication: PSORIASIS

REACTIONS (9)
  - ARTHRALGIA [None]
  - BASAL CELL CARCINOMA [None]
  - BRONCHITIS [None]
  - DERMATITIS HERPETIFORMIS [None]
  - INJECTION SITE ERYTHEMA [None]
  - NASOPHARYNGITIS [None]
  - PSORIASIS [None]
  - SINUSITIS [None]
  - URTICARIA [None]
